FAERS Safety Report 8176081-9 (Version None)
Quarter: 2012Q1

REPORT INFORMATION
  Report Type: 
  Country: None (occurrence: None)
  Receive Date: 20120301
  Receipt Date: 20120220
  Transmission Date: 20120608
  Serious: Yes (Death, Life-Threatening)
  Sender: FDA-Public Use
  Company Number: FR-BRISTOL-MYERS SQUIBB COMPANY-16409484

PATIENT
  Age: 68 Year
  Sex: Female

DRUGS (11)
  1. CYTARABINE [Suspect]
     Indication: ACUTE LEUKAEMIA
     Dates: start: 20111228
  2. LEVOFLOXACIN [Suspect]
     Dates: start: 20111229
  3. AMIODARONE HCL [Suspect]
     Route: 042
     Dates: start: 20111230
  4. FASTURTEC [Suspect]
     Dates: start: 20111228
  5. EMEND [Suspect]
     Dates: start: 20111229
  6. ZYVOX [Suspect]
     Dates: start: 20111230
  7. PIPERACILLIN AND TAZOBACTAM [Suspect]
     Dates: start: 20111228, end: 20120104
  8. VANCOMYCIN [Suspect]
     Dates: start: 20120105
  9. HYDREA [Suspect]
     Dates: start: 20111226, end: 20111228
  10. IDARUBICIN HCL [Suspect]
     Indication: ACUTE LEUKAEMIA
     Dates: start: 20111228
  11. VALACYCLOVIR HYDROCHLORIDE [Suspect]
     Dates: start: 20111228

REACTIONS (6)
  - DERMATITIS BULLOUS [None]
  - RENAL FAILURE ACUTE [None]
  - HYPOTENSION [None]
  - DEHYDRATION [None]
  - TACHYCARDIA [None]
  - APLASIA [None]
